FAERS Safety Report 8514227-0 (Version None)
Quarter: 2012Q3

REPORT INFORMATION
  Report Type: 
  Country: None (occurrence: None)
  Receive Date: 20120717
  Receipt Date: 20120712
  Transmission Date: 20120928
  Serious: Yes (Hospitalization)
  Sender: FDA-Public Use
  Company Number: US-BAYER-2012-070548

PATIENT
  Age: 24 Year
  Sex: Female
  Weight: 136 kg

DRUGS (8)
  1. CYCLOBENZAPRINE [Concomitant]
     Dosage: 10 MG, UNK
     Route: 048
     Dates: start: 20101007
  2. IRON [Concomitant]
     Indication: BLOOD IRON DECREASED
  3. NAPROXEN [Concomitant]
     Dosage: 500 MG, UNK
     Route: 048
     Dates: start: 20101111
  4. DROSPIRENONE AND ETHINYL ESTRADIOL [Suspect]
  5. METAXALONE [Concomitant]
     Dosage: 800 MG, UNK
     Route: 048
     Dates: start: 20101111
  6. YASMIN [Suspect]
  7. NIFEREX [Concomitant]
  8. YAZ [Suspect]

REACTIONS (1)
  - PULMONARY EMBOLISM [None]
